FAERS Safety Report 9858096 (Version 1)
Quarter: 2014Q1

REPORT INFORMATION
  Report Type: Spontaneous
  Country: ES (occurrence: ES)
  Receive Date: 20140131
  Receipt Date: 20140131
  Transmission Date: 20141002
  Serious: Yes (Other)
  Sender: FDA-Public Use
  Company Number: ES-VERTEX PHARMACEUTICALS INC-2014-000498

PATIENT
  Age: 54 Year
  Sex: 0

DRUGS (3)
  1. INCIVO [Suspect]
     Indication: HEPATITIS C
     Dosage: FINISHED 12 WEEK OF TREATMENT
     Route: 048
  2. INTERFERON [Suspect]
     Indication: HEPATITIS C
     Dosage: DOSAGE FORM: INJECTION, COMPLETED 24 WEEKS OF TREATMENT
     Route: 065
  3. RIBAVIRIN [Suspect]
     Indication: HEPATITIS C
     Dosage: DOSAGE FORM: UNSPECIFIED, COMPLETED 24 WEEKS OF TREATMENT
     Route: 065

REACTIONS (13)
  - Depression [Unknown]
  - Headache [Unknown]
  - Parosmia [Unknown]
  - Insomnia [Unknown]
  - Pyrexia [Unknown]
  - Weight decreased [Unknown]
  - Decreased appetite [Unknown]
  - Alopecia [Unknown]
  - Infection [Unknown]
  - Photophobia [Unknown]
  - Hyperacusis [Unknown]
  - Anaemia [Recovered/Resolved]
  - Nausea [Unknown]
